FAERS Safety Report 9319505 (Version 2)
Quarter: 2013Q2

REPORT INFORMATION
  Report Type: Spontaneous
  Country: CH (occurrence: CH)
  Receive Date: 20130530
  Receipt Date: 20130628
  Transmission Date: 20140414
  Serious: Yes (Hospitalization)
  Sender: FDA-Public Use
  Company Number: CH-MERCK-1305CHE016799

PATIENT
  Age: 50 Year
  Sex: Male

DRUGS (3)
  1. SINGULAIR [Suspect]
     Indication: ASTHMA
  2. SERETIDE [Suspect]
     Indication: ASTHMA
  3. VENTOLIN (ALBUTEROL) [Suspect]
     Indication: ASTHMA

REACTIONS (2)
  - Asthma [Unknown]
  - Drug effect decreased [Unknown]
